FAERS Safety Report 7359090-9 (Version None)
Quarter: 2011Q1

REPORT INFORMATION
  Report Type: 
  Country: None (occurrence: None)
  Receive Date: 20110317
  Receipt Date: 20110224
  Transmission Date: 20110831
  Serious: Yes (Hospitalization, Other)
  Sender: FDA-Public Use
  Company Number: US-BAYER-201041508NA

PATIENT
  Sex: Female
  Weight: 79 kg

DRUGS (7)
  1. YASMIN [Suspect]
     Indication: ACNE
     Dosage: UNK
     Dates: start: 20070101, end: 20100101
  2. YASMIN [Suspect]
     Indication: PREMENSTRUAL SYNDROME
  3. OCELLA [Suspect]
     Indication: ACNE
     Dosage: UNK
     Dates: start: 20070101, end: 20100101
  4. YAZ [Suspect]
     Indication: ACNE
     Dosage: UNK
     Dates: start: 20070101, end: 20100101
  5. YAZ [Suspect]
     Indication: PREMENSTRUAL SYNDROME
  6. OCELLA [Suspect]
     Indication: PREMENSTRUAL SYNDROME
  7. SYNTHROID [Concomitant]
     Indication: THYROID DISORDER
     Dosage: 75 ?G, UNK
     Route: 048

REACTIONS (5)
  - CHOLECYSTITIS CHRONIC [None]
  - INJURY [None]
  - CHOLELITHIASIS [None]
  - PAIN [None]
  - GALLBLADDER DISORDER [None]
